FAERS Safety Report 24092997 (Version 1)
Quarter: 2024Q3

REPORT INFORMATION
  Report Type: Spontaneous
  Country: US (occurrence: None)
  Receive Date: 20240715
  Receipt Date: 20240715
  Transmission Date: 20241017
  Serious: Yes (Life-Threatening, Hospitalization, Other)
  Sender: Public
  Company Number: None

PATIENT
  Age: 58 Year
  Sex: Female
  Weight: 103.87 kg

DRUGS (10)
  1. LEVOCARNITINE\TIRZEPATIDE [Suspect]
     Active Substance: LEVOCARNITINE\TIRZEPATIDE
     Indication: Weight decreased
     Dosage: OTHER QUANTITY : INJECTION;?DURATION WEEKLY X3?
     Route: 058
     Dates: start: 20240511, end: 20240525
  2. SYNTHROID [Concomitant]
     Active Substance: LEVOTHYROXINE SODIUM
  3. ESTROGENS [Concomitant]
     Active Substance: ESTROGENS
  4. ZOLOFT [Concomitant]
     Active Substance: SERTRALINE HYDROCHLORIDE
  5. prolosec [Concomitant]
  6. REGLAN [Concomitant]
     Active Substance: METOCLOPRAMIDE HYDROCHLORIDE
  7. compazine [Concomitant]
  8. AVAPRO [Concomitant]
     Active Substance: IRBESARTAN
  9. avtivan [Concomitant]
  10. multivitamin [Concomitant]

REACTIONS (3)
  - Vomiting [None]
  - Blood pressure systolic increased [None]
  - Retching [None]

NARRATIVE: CASE EVENT DATE: 20240531
